FAERS Safety Report 10406031 (Version 1)
Quarter: 2014Q3

REPORT INFORMATION
  Report Type: Spontaneous
  Country: US (occurrence: None)
  Receive Date: 20140822
  Receipt Date: 20140822
  Transmission Date: 20150326
  Serious: Yes (Other)
  Sender: FDA-Public Use
  Company Number: None

PATIENT

DRUGS (1)
  1. HALDOL [Suspect]
     Active Substance: HALOPERIDOL
     Dosage: 5 MG (1 AMPULE) QID INTRAMUSCULAR
     Route: 030
     Dates: start: 20140821, end: 20140821

REACTIONS (5)
  - Injury [None]
  - Foreign body [None]
  - Product label issue [None]
  - Limb injury [None]
  - Device issue [None]

NARRATIVE: CASE EVENT DATE: 20140821
